FAERS Safety Report 9867174 (Version 1)
Quarter: 2014Q1

REPORT INFORMATION
  Report Type: Spontaneous
  Country: US (occurrence: US)
  Receive Date: 20140204
  Receipt Date: 20140204
  Transmission Date: 20141002
  Serious: No
  Sender: FDA-Public Use
  Company Number: US-009507513-1401USA009437

PATIENT
  Sex: Male

DRUGS (1)
  1. DUOFILM LIQUID [Suspect]
     Indication: PRODUCT USED FOR UNKNOWN INDICATION
     Dosage: UNK, BID
     Route: 061

REACTIONS (3)
  - Application site swelling [Unknown]
  - Skin papilloma [Unknown]
  - Skin disorder [Unknown]
